FAERS Safety Report 19859799 (Version 1)
Quarter: 2021Q3

REPORT INFORMATION
  Report Type: Spontaneous
  Country: US (occurrence: US)
  Receive Date: 20210921
  Receipt Date: 20210921
  Transmission Date: 20211014
  Serious: Yes (Hospitalization)
  Sender: FDA-Public Use
  Company Number: US-STRIDES ARCOLAB LIMITED-2021SP005626

PATIENT
  Age: 34 Year
  Sex: Female

DRUGS (13)
  1. VITAMIN D [VITAMIN D NOS] [Suspect]
     Active Substance: VITAMIN D NOS
     Dosage: UNK (ACTIVE VITAMIN D REGIMEN)
     Route: 065
  2. CALCIUM ACETATE. [Suspect]
     Active Substance: CALCIUM ACETATE
     Indication: POST PROCEDURAL HYPOPARATHYROIDISM
     Dosage: 2 TABLETS, TID
     Route: 065
  3. CALCIUM GLUCONATE. [Suspect]
     Active Substance: CALCIUM GLUCONATE
     Indication: POST PROCEDURAL HYPOPARATHYROIDISM
     Dosage: UNK (IV DRIP)
     Route: 042
  4. CALCITRIOL. [Suspect]
     Active Substance: CALCITRIOL
     Indication: POST PROCEDURAL HYPOPARATHYROIDISM
     Dosage: 0.5 MILLIGRAM, QID
     Route: 065
  5. VITAMIN D [VITAMIN D NOS] [Suspect]
     Active Substance: VITAMIN D NOS
     Indication: POST PROCEDURAL HYPOPARATHYROIDISM
     Dosage: UNK
     Route: 065
  6. ERGOCALCIFEROL. [Suspect]
     Active Substance: ERGOCALCIFEROL
     Indication: POST PROCEDURAL HYPOPARATHYROIDISM
     Dosage: 50000 INTERNATIONAL UNIT WEEKLY
     Route: 065
  7. MAGNESIUM CITRATE. [Suspect]
     Active Substance: MAGNESIUM CITRATE
     Indication: POST PROCEDURAL HYPOPARATHYROIDISM
     Dosage: 300 MILLIGRAM DAILY
     Route: 065
  8. CALCIUM CARBONATE. [Suspect]
     Active Substance: CALCIUM CARBONATE
     Indication: POST PROCEDURAL HYPOPARATHYROIDISM
     Dosage: 3 TABLETS, QID
     Route: 065
  9. CALCIUM GLUCONATE. [Suspect]
     Active Substance: CALCIUM GLUCONATE
     Dosage: UNK
     Route: 042
  10. CALCIUM [Suspect]
     Active Substance: CALCIUM
     Indication: POST PROCEDURAL HYPOPARATHYROIDISM
     Dosage: UNK
     Route: 048
  11. CALCIUM CITRATE [Suspect]
     Active Substance: CALCIUM CITRATE
     Indication: POST PROCEDURAL HYPOPARATHYROIDISM
     Dosage: 2 TABLETS, QID
     Route: 065
  12. HYDROCHLOROTHIAZIDE. [Suspect]
     Active Substance: HYDROCHLOROTHIAZIDE
     Indication: POST PROCEDURAL HYPOPARATHYROIDISM
     Dosage: 50 MILLIGRAM DAILY
     Route: 065
  13. LEVOTHYROXINE. [Concomitant]
     Active Substance: LEVOTHYROXINE
     Indication: POST PROCEDURAL HYPOPARATHYROIDISM
     Dosage: UNK
     Route: 065

REACTIONS (1)
  - Drug ineffective [Unknown]
